FAERS Safety Report 12862137 (Version 1)
Quarter: 2016Q4

REPORT INFORMATION
  Report Type: Spontaneous
  Country: US (occurrence: US)
  Receive Date: 20161018
  Receipt Date: 20161018
  Transmission Date: 20170207
  Serious: Yes (Other)
  Sender: FDA-Public Use
  Company Number: None

PATIENT
  Age: 40 Year
  Sex: Female
  Weight: 5.85 kg

DRUGS (2)
  1. PHENTERMINE. [Suspect]
     Active Substance: PHENTERMINE
  2. PHENDIMETRAZINE [Suspect]
     Active Substance: PHENDIMETRAZINE

REACTIONS (7)
  - Pallor [None]
  - Hyperhidrosis [None]
  - Lethargy [None]
  - Blood pressure increased [None]
  - Feeling cold [None]
  - Dyspnoea [None]
  - Chest pain [None]

NARRATIVE: CASE EVENT DATE: 20161003
